APPROVED DRUG PRODUCT: PROPOXYPHENE HYDROCHLORIDE
Active Ingredient: PROPOXYPHENE HYDROCHLORIDE
Strength: 65MG
Dosage Form/Route: CAPSULE;ORAL
Application: A088615 | Product #001
Applicant: TEVA PHARMACEUTICALS USA INC
Approved: Oct 22, 1984 | RLD: No | RS: No | Type: DISCN